FAERS Safety Report 7098275-6 (Version None)
Quarter: 2010Q4

REPORT INFORMATION
  Report Type: 
  Country: None (occurrence: None)
  Receive Date: 20101112
  Receipt Date: 20100909
  Transmission Date: 20110411
  Serious: No
  Sender: FDA-Public Use
  Company Number: A0867914A

PATIENT
  Sex: Female

DRUGS (2)
  1. TREXIMET [Suspect]
     Dosage: 1TAB AS DIRECTED
     Route: 048
  2. COUMADIN [Concomitant]

REACTIONS (4)
  - FATIGUE [None]
  - HEADACHE [None]
  - SINUS HEADACHE [None]
  - SINUSITIS [None]
